FAERS Safety Report 8925652 (Version 3)
Quarter: 2013Q1

REPORT INFORMATION
  Report Type: Report from Study
  Country: US (occurrence: US)
  Receive Date: 20121126
  Receipt Date: 20130111
  Transmission Date: 20140127
  Serious: No
  Sender: FDA-Public Use
  Company Number: US-VERTEX PHARMACEUTICAL INC.-2012-024898

PATIENT
  Sex: Female

DRUGS (3)
  1. VX-950 (TELAPREVIR) [Suspect]
     Indication: HEPATITIS C
     Dosage: 750 MG, TID
     Route: 048
     Dates: start: 2012
  2. PEGASYS [Suspect]
     Indication: HEPATITIS C
     Dosage: 180 ?G, WEEKLY
     Route: 058
     Dates: start: 2012
  3. RIBASPHERE [Suspect]
     Indication: HEPATITIS C
     Dosage: 600 MG, BID
     Route: 048
     Dates: start: 2012

REACTIONS (8)
  - Oropharyngeal pain [Unknown]
  - Nasopharyngitis [Unknown]
  - Headache [Unknown]
  - Pain [Unknown]
  - Vomiting [Unknown]
  - Frequent bowel movements [Unknown]
  - Haemorrhoidal haemorrhage [Unknown]
  - Anorectal discomfort [Unknown]
